FAERS Safety Report 5255749-8 (Version None)
Quarter: 2007Q1

REPORT INFORMATION
  Report Type: 
  Country: None (occurrence: None)
  Receive Date: 20070301
  Receipt Date: 20070222
  Transmission Date: 20070707
  Serious: Yes (Life-Threatening, Hospitalization)
  Sender: FDA-Public Use
  Company Number: 2007-154740-NL

PATIENT
  Age: 44 Year
  Sex: Female

DRUGS (4)
  1. MIRTAZAPINE [Suspect]
     Indication: DEPRESSION
     Dosage: 15 MG/30 MG ORAL
     Route: 048
     Dates: start: 20070116, end: 20070131
  2. MIRTAZAPINE [Suspect]
     Indication: DEPRESSION
     Dosage: 15 MG/30 MG ORAL
     Route: 048
     Dates: start: 20061211, end: 20070131
  3. OXCARBAZEPINE [Suspect]
     Dosage: 459 MG ORAL
     Route: 048
     Dates: start: 20070116, end: 20070131
  4. CYMBALTA [Suspect]
     Dosage: 30 MG QD ORAL
     Route: 048
     Dates: start: 20070126, end: 20070131

REACTIONS (10)
  - ANOREXIA [None]
  - BALANCE DISORDER [None]
  - FATIGUE [None]
  - GAIT DISTURBANCE [None]
  - HEMIPARESIS [None]
  - HYPERSENSITIVITY [None]
  - LARYNGOSPASM [None]
  - PALPITATIONS [None]
  - PARAESTHESIA [None]
  - WEIGHT DECREASED [None]
